FAERS Safety Report 11970521 (Version 1)
Quarter: 2016Q1

REPORT INFORMATION
  Report Type: Spontaneous
  Country: AT (occurrence: AT)
  Receive Date: 20160128
  Receipt Date: 20160128
  Transmission Date: 20160526
  Serious: Yes (Other)
  Sender: FDA-Public Use
  Company Number: AT-TEVA-628251ISR

PATIENT
  Age: 43 Year
  Sex: Male

DRUGS (8)
  1. TORASEMID [Suspect]
     Active Substance: TORSEMIDE
     Dosage: 20 MILLIGRAM DAILY; HALF TABLET DAILY
  2. MYCOPHENOLATE MOFETIL. [Suspect]
     Active Substance: MYCOPHENOLATE MOFETIL
     Indication: IMMUNOSUPPRESSION
     Dosage: DAILY
  3. RILMENIDINE [Suspect]
     Active Substance: RILMENIDINE
     Dosage: 2 MILLIGRAM DAILY; DAILY
  4. BISOPROLOL [Suspect]
     Active Substance: BISOPROLOL
     Dosage: 5 MILLIGRAM DAILY; DAILY
  5. LERCANIDIPIN [Suspect]
     Active Substance: LERCANIDIPINE
     Dosage: 10 MILLIGRAM DAILY; DAILY
  6. FOSINOPRIL [Suspect]
     Active Substance: FOSINOPRIL
     Dosage: 40 MILLIGRAM DAILY; DAILY
  7. SIROLIMUS. [Suspect]
     Active Substance: SIROLIMUS
     Indication: IMMUNOSUPPRESSION
  8. MINOXIDIL. [Suspect]
     Active Substance: MINOXIDIL
     Dosage: 10 MILLIGRAM DAILY; DAILY

REACTIONS (5)
  - Pericardial effusion [Recovering/Resolving]
  - Dyspnoea exertional [Recovering/Resolving]
  - Hypertension [Recovering/Resolving]
  - Oedema peripheral [Recovering/Resolving]
  - Normochromic normocytic anaemia [Recovering/Resolving]
